FAERS Safety Report 26038052 (Version 1)
Quarter: 2025Q4

REPORT INFORMATION
  Report Type: Report from Study
  Country: US (occurrence: US)
  Receive Date: 20251112
  Receipt Date: 20251112
  Transmission Date: 20260118
  Serious: Yes (Other)
  Sender: AZURITY PHARMACEUTICALS
  Company Number: US-AZURITY PHARMACEUTICALS, INC.-AZR202505-001532

PATIENT
  Age: 9 Year
  Sex: Male

DRUGS (8)
  1. TRIPTODUR [Suspect]
     Active Substance: TRIPTORELIN
     Indication: Product used for unknown indication
     Dosage: FIRST DOSE
     Route: 065
  2. TRIPTODUR [Suspect]
     Active Substance: TRIPTORELIN
     Dosage: MAINTENANCE DOSE
     Route: 030
     Dates: start: 20250521
  3. TRIPTODUR [Suspect]
     Active Substance: TRIPTORELIN
     Dosage: MAINTENANCE DOSE
     Route: 030
     Dates: start: 20250523
  4. EPIDIOLEX [Concomitant]
     Active Substance: CANNABIDIOL
     Indication: Product used for unknown indication
     Dosage: UNK
     Route: 065
  5. VITAMIN D [Concomitant]
     Active Substance: VITAMIN D NOS
     Indication: Product used for unknown indication
     Dosage: UNK
     Route: 065
  6. DIAZEPAM [Concomitant]
     Active Substance: DIAZEPAM
     Indication: Product used for unknown indication
     Dosage: UNK
     Route: 065
  7. CLONAZEPAM [Concomitant]
     Active Substance: CLONAZEPAM
     Indication: Product used for unknown indication
     Dosage: UNK
     Route: 065
  8. ONFI [Concomitant]
     Active Substance: CLOBAZAM
     Indication: Product used for unknown indication
     Dosage: UNK
     Route: 065

REACTIONS (3)
  - Therapeutic procedure [Unknown]
  - Hypersensitivity [Unknown]
  - Product use complaint [Unknown]

NARRATIVE: CASE EVENT DATE: 20250521
